FAERS Safety Report 14773954 (Version 1)
Quarter: 2018Q2

REPORT INFORMATION
  Report Type: Spontaneous
  Country: HR (occurrence: HR)
  Receive Date: 20180418
  Receipt Date: 20180418
  Transmission Date: 20180711
  Serious: Yes (Hospitalization)
  Sender: FDA-Public Use
  Company Number: HR-BAYER-2018-070475

PATIENT
  Age: 85 Year
  Sex: Female

DRUGS (7)
  1. NOVOMIX [INSULIN ASPART,INSULIN ASPART PROTAMINE (CRYSTALLINE)] [Concomitant]
     Dosage: UNK UNK, OM
  2. RAMIPRIL. [Concomitant]
     Active Substance: RAMIPRIL
     Dosage: 10 MG, OM
  3. ASPIRIN PROTECT 100 MG [Suspect]
     Active Substance: ASPIRIN
     Dosage: 100 MG, QD
  4. ATORVASTATIN [Concomitant]
     Active Substance: ATORVASTATIN
     Dosage: 20 MG, HS
  5. INSULIN [Concomitant]
     Active Substance: INSULIN NOS
     Indication: DIABETES MELLITUS
     Dosage: UNK
     Dates: start: 2013
  6. FUROSEMIDE. [Concomitant]
     Active Substance: FUROSEMIDE
     Dosage: 40 MG, QOD
  7. BISOPROLOL [Concomitant]
     Active Substance: BISOPROLOL
     Dosage: 2.5 MG, QD

REACTIONS (7)
  - Dyspnoea exertional [None]
  - Dyspnoea [None]
  - Musculoskeletal discomfort [None]
  - Cardiac failure [None]
  - Heart rate increased [None]
  - Suffocation feeling [None]
  - Atrial fibrillation [None]

NARRATIVE: CASE EVENT DATE: 201802
